FAERS Safety Report 17773136 (Version 4)
Quarter: 2020Q4

REPORT INFORMATION
  Report Type: Report from Study
  Country: None (occurrence: CO)
  Receive Date: 20200513
  Receipt Date: 20201218
  Transmission Date: 20210113
  Serious: Yes (Other)
  Sender: FDA-Public Use
  Company Number: CO-ABBVIE-20K-036-3250601-00

PATIENT
  Age: 49 Year
  Sex: Female
  Weight: 55 kg

DRUGS (4)
  1. HUMIRA [Suspect]
     Active Substance: ADALIMUMAB
     Indication: RHEUMATOID ARTHRITIS
     Route: 058
     Dates: start: 20121012
  2. HUMIRA [Suspect]
     Active Substance: ADALIMUMAB
     Route: 058
     Dates: end: 20200214
  3. HUMIRA [Suspect]
     Active Substance: ADALIMUMAB
     Indication: RHEUMATOID ARTHRITIS
     Route: 058
     Dates: end: 20191225
  4. CEPHALEXIN. [Suspect]
     Active Substance: CEPHALEXIN
     Indication: PRODUCT USED FOR UNKNOWN INDICATION
     Route: 065

REACTIONS (19)
  - Tinnitus [Not Recovered/Not Resolved]
  - Musculoskeletal chest pain [Recovering/Resolving]
  - Pain [Unknown]
  - Chills [Recovered/Resolved]
  - Dyspnoea [Not Recovered/Not Resolved]
  - Joint swelling [Recovering/Resolving]
  - Pruritus [Unknown]
  - Carcinoma in situ of skin [Recovering/Resolving]
  - Hypoacusis [Unknown]
  - Gastrooesophageal reflux disease [Recovering/Resolving]
  - Arthralgia [Unknown]
  - Ear swelling [Recovering/Resolving]
  - Skin discomfort [Not Recovered/Not Resolved]
  - Ear pruritus [Unknown]
  - Respiratory tract infection [Unknown]
  - Diarrhoea [Recovered/Resolved]
  - Pruritus [Not Recovered/Not Resolved]
  - Influenza [Recovering/Resolving]
  - Peripheral swelling [Recovering/Resolving]

NARRATIVE: CASE EVENT DATE: 2019
